FAERS Safety Report 11188435 (Version 3)
Quarter: 2015Q3

REPORT INFORMATION
  Report Type: Spontaneous
  Country: US (occurrence: US)
  Receive Date: 20150615
  Receipt Date: 20150901
  Transmission Date: 20151125
  Serious: No
  Sender: FDA-Public Use
  Company Number: US-JNJFOC-20150509654

PATIENT
  Age: 38 Year
  Sex: Male
  Weight: 102.97 kg

DRUGS (12)
  1. VITAMIN C [Concomitant]
     Active Substance: ASCORBIC ACID
     Route: 065
  2. REMICADE [Suspect]
     Active Substance: INFLIXIMAB
     Indication: COLITIS ULCERATIVE
     Route: 042
     Dates: start: 20150513
  3. REMICADE [Suspect]
     Active Substance: INFLIXIMAB
     Indication: COLITIS ULCERATIVE
     Dosage: 1000MG.
     Route: 042
     Dates: start: 20150513
  4. B-100 [Concomitant]
     Dosage: 1 TAB DAILY.
     Route: 065
  5. BENADRYL [Suspect]
     Active Substance: DIPHENHYDRAMINE HYDROCHLORIDE
     Indication: PREMEDICATION
     Route: 065
     Dates: start: 20150513, end: 20150513
  6. 6-MP [Concomitant]
     Active Substance: MERCAPTOPURINE
     Route: 065
  7. IMURAN [Concomitant]
     Active Substance: AZATHIOPRINE
     Route: 065
  8. HUMIRA [Concomitant]
     Active Substance: ADALIMUMAB
     Route: 065
  9. ZYRTEC [Suspect]
     Active Substance: CETIRIZINE HYDROCHLORIDE
     Indication: PREMEDICATION
     Route: 048
  10. TYLENOL [Concomitant]
     Active Substance: ACETAMINOPHEN
     Indication: PREMEDICATION
     Route: 065
     Dates: start: 20150513, end: 20150513
  11. TURMERIC [Concomitant]
     Active Substance: TURMERIC
     Dosage: 2 DAILY.
     Route: 065
  12. FISH OIL [Concomitant]
     Active Substance: FISH OIL
     Route: 065

REACTIONS (8)
  - Pharyngeal disorder [Recovering/Resolving]
  - Infusion related reaction [Recovering/Resolving]
  - Throat irritation [Recovering/Resolving]
  - Hypersensitivity [Recovered/Resolved]
  - Chest discomfort [Recovering/Resolving]
  - Oropharyngeal pain [Recovering/Resolving]
  - Unevaluable event [Recovered/Resolved]
  - Cough [Recovering/Resolving]

NARRATIVE: CASE EVENT DATE: 20150513
